FAERS Safety Report 12624460 (Version 1)
Quarter: 2016Q3

REPORT INFORMATION
  Report Type: Spontaneous
  Country: IT (occurrence: IT)
  Receive Date: 20160805
  Receipt Date: 20160805
  Transmission Date: 20161109
  Serious: Yes (Other)
  Sender: FDA-Public Use
  Company Number: IT-CIPLA LTD.-2016IT16972

PATIENT

DRUGS (3)
  1. DINTOINA (100 MG COMPRESSE RIVESTITE 30 COMPRESSE) [Concomitant]
     Indication: LENNOX-GASTAUT SYNDROME
     Dosage: 200 MG, SINCE 2 YEARS
     Route: 048
  2. VIMPAT ^200 MG - COMPRESSE RIVESTITE CON FILM - USO ORALE - BLISTER^ [Concomitant]
     Indication: PRODUCT USED FOR UNKNOWN INDICATION
     Dosage: 400 MG,
     Route: 048
  3. LEVETIRACETAM. [Suspect]
     Active Substance: LEVETIRACETAM
     Indication: LENNOX-GASTAUT SYNDROME
     Dosage: 1000 MG DAILY
     Route: 048
     Dates: start: 20160520, end: 20160520

REACTIONS (1)
  - Seizure [Recovered/Resolved]

NARRATIVE: CASE EVENT DATE: 20160520
